FAERS Safety Report 20220425 (Version 4)
Quarter: 2022Q1

REPORT INFORMATION
  Report Type: Spontaneous
  Country: CA (occurrence: CA)
  Receive Date: 20211223
  Receipt Date: 20220310
  Transmission Date: 20220423
  Serious: Yes (Other)
  Sender: FDA-Public Use
  Company Number: CA-CELLTRION INC.-2019CA023294

PATIENT

DRUGS (20)
  1. INFLECTRA [Suspect]
     Active Substance: INFLIXIMAB-DYYB
     Indication: Ankylosing spondylitis
     Dosage: 5 MG/KG, 0, 2, 6 THEN EVERY 8 WEEKS
     Route: 042
     Dates: start: 20190710
  2. INFLECTRA [Suspect]
     Active Substance: INFLIXIMAB-DYYB
     Indication: Colitis ulcerative
     Dosage: 5 MG/KG, 0, 2, 6 THEN EVERY 8 WEEKS
     Route: 042
     Dates: start: 20190723
  3. INFLECTRA [Suspect]
     Active Substance: INFLIXIMAB-DYYB
     Dosage: 5 MG/KG, 0,2,6 THEN EVERY 8 WEEKS
     Route: 042
     Dates: start: 20190820
  4. INFLECTRA [Suspect]
     Active Substance: INFLIXIMAB-DYYB
     Dosage: 5 MG/KG, 0,2,6 WEEKS THEN EVERY 8 WEEKS
     Route: 042
     Dates: start: 20191210
  5. INFLECTRA [Suspect]
     Active Substance: INFLIXIMAB-DYYB
     Dosage: 5 MG/KG, 0,2,6 WEEKS THEN EVERY 8 WEEKS
     Route: 042
     Dates: start: 20200123
  6. INFLECTRA [Suspect]
     Active Substance: INFLIXIMAB-DYYB
     Dosage: 5 MG/KG, 0,2,6 WEEKS THEN EVERY 8 WEEKS
     Route: 042
     Dates: start: 20200323
  7. INFLECTRA [Suspect]
     Active Substance: INFLIXIMAB-DYYB
     Dosage: 5 MG/KG, 0,2,6 WEEKS THEN EVERY 8 WEEKS
     Route: 042
     Dates: start: 20200519
  8. INFLECTRA [Suspect]
     Active Substance: INFLIXIMAB-DYYB
     Dosage: 5 MG/KG, 0,2,6 WEEKS THEN EVERY 8 WEEKS
     Route: 042
     Dates: start: 20200717
  9. INFLECTRA [Suspect]
     Active Substance: INFLIXIMAB-DYYB
     Dosage: 5 MG/KG, 0,2,6 WEEKS THEN EVERY 8 WEEKS
     Route: 042
     Dates: start: 20200909
  10. INFLECTRA [Suspect]
     Active Substance: INFLIXIMAB-DYYB
     Dosage: 5 MG/KG, 0,2,6 WEEKS THEN EVERY 8 WEEKS
     Route: 042
     Dates: start: 20201109
  11. INFLECTRA [Suspect]
     Active Substance: INFLIXIMAB-DYYB
     Dosage: 5 MG/KG, 0,2,6 WEEKS THEN EVERY 8 WEEKS
     Route: 042
     Dates: start: 20210104
  12. INFLECTRA [Suspect]
     Active Substance: INFLIXIMAB-DYYB
     Dosage: 5 MG/KG, 0,2,6 WEEKS THEN EVERY 8 WEEKS
     Route: 042
     Dates: start: 20210301
  13. INFLECTRA [Suspect]
     Active Substance: INFLIXIMAB-DYYB
     Dosage: 5 MG/KG, 0,2,6 WEEKS THEN EVERY 8 WEEKS
     Route: 042
     Dates: start: 20210426
  14. INFLECTRA [Suspect]
     Active Substance: INFLIXIMAB-DYYB
     Dosage: 5 MG/KG, 0,2,6 WEEKS THEN EVERY 8 WEEKS
     Route: 042
     Dates: start: 20210621
  15. INFLECTRA [Suspect]
     Active Substance: INFLIXIMAB-DYYB
     Dosage: 5 MG/KG, 0,2,6 WEEKS THEN EVERY 8 WEEKS
     Route: 042
     Dates: start: 20211019
  16. INFLECTRA [Suspect]
     Active Substance: INFLIXIMAB-DYYB
     Dosage: 5 MG/KG, 0,2,6 WEEKS THEN EVERY 8 WEEKS
     Route: 042
     Dates: start: 20211214
  17. INFLECTRA [Suspect]
     Active Substance: INFLIXIMAB-DYYB
     Dosage: 5 MG/KG, 0,2,6 WEEKS THEN EVERY 8 WEEKS
     Route: 042
     Dates: start: 20220228
  18. MESALAMINE [Concomitant]
     Active Substance: MESALAMINE
     Indication: Colitis ulcerative
     Dosage: UNK
  19. SERTRALINE [Concomitant]
     Active Substance: SERTRALINE HYDROCHLORIDE
     Indication: Depression
     Dosage: UNK
  20. SERTRALINE [Concomitant]
     Active Substance: SERTRALINE HYDROCHLORIDE
     Indication: Anxiety
     Dosage: 0.25 MG, 1X/DAY
     Dates: start: 202006

REACTIONS (19)
  - Blood pressure systolic increased [Not Recovered/Not Resolved]
  - Therapeutic product effect incomplete [Unknown]
  - Off label use [Unknown]
  - Off label use [Unknown]
  - Inappropriate schedule of product administration [Unknown]
  - Intentional product use issue [Unknown]
  - Abdominal discomfort [Unknown]
  - Arthralgia [Not Recovered/Not Resolved]
  - Anxiety [Unknown]
  - Blood pressure increased [Unknown]
  - Gastrooesophageal reflux disease [Unknown]
  - Pain [Unknown]
  - Lymphadenopathy [Unknown]
  - Oropharyngeal pain [Recovered/Resolved]
  - Sensation of foreign body [Unknown]
  - Urinary tract infection [Unknown]
  - Diarrhoea [Recovered/Resolved]
  - Abdominal pain [Recovered/Resolved]
  - Abdominal pain [Recovered/Resolved]

NARRATIVE: CASE EVENT DATE: 20190101
